FAERS Safety Report 12125682 (Version 1)
Quarter: 2016Q1

REPORT INFORMATION
  Report Type: Spontaneous
  Country: US (occurrence: None)
  Receive Date: 20160226
  Receipt Date: 20160226
  Transmission Date: 20160526
  Serious: Yes (Hospitalization)
  Sender: FDA-Public Use
  Company Number: None

PATIENT
  Age: 63 Year
  Sex: Male
  Weight: 129.72 kg

DRUGS (23)
  1. MYCOPHENOLATE [Concomitant]
     Active Substance: MYCOPHENOLIC ACID
  2. POLYETHYLENE GLYCOL [Concomitant]
     Active Substance: POLYETHYLENE GLYCOLS
  3. HARVONI [Suspect]
     Active Substance: LEDIPASVIR\SOFOSBUVIR
     Indication: HEPATITIS C
     Dosage: 90/400MG 1XDAILY ORAL
     Route: 048
     Dates: start: 20150713, end: 20151005
  4. ASPIRIN. [Concomitant]
     Active Substance: ASPIRIN
  5. SIROLIMUS. [Concomitant]
     Active Substance: SIROLIMUS
  6. AMLODIPINE [Concomitant]
     Active Substance: AMLODIPINE BESYLATE
  7. CLOBETASOL [Concomitant]
     Active Substance: CLOBETASOL
  8. AMITRIPTYLINE [Concomitant]
     Active Substance: AMITRIPTYLINE
  9. CALCIUM CARB-CHOLECALCIFEROL [Concomitant]
  10. CLINDAMYCIN [Concomitant]
     Active Substance: CLINDAMYCIN\CLINDAMYCIN PHOSPHATE
  11. EPINEPHRINE. [Concomitant]
     Active Substance: EPINEPHRINE
  12. KETOCONAZOLE. [Concomitant]
     Active Substance: KETOCONAZOLE
  13. SENNA-DOCUSATE [Concomitant]
  14. ALLOPURINOL. [Concomitant]
     Active Substance: ALLOPURINOL
  15. DIPHENHYDRAMINE. [Concomitant]
     Active Substance: DIPHENHYDRAMINE
  16. ERGOCALCIFEROL. [Concomitant]
     Active Substance: ERGOCALCIFEROL
  17. PIMECROLIMUS [Concomitant]
     Active Substance: PIMECROLIMUS
  18. MAGNESIUM OXIDE. [Concomitant]
     Active Substance: MAGNESIUM OXIDE
  19. TADALAFIL [Concomitant]
     Active Substance: TADALAFIL
  20. OXYCODONE [Concomitant]
     Active Substance: OXYCODONE
  21. TACROLIMUS. [Concomitant]
     Active Substance: TACROLIMUS
  22. GABAPENTIN. [Concomitant]
     Active Substance: GABAPENTIN
  23. METFORMIN [Concomitant]
     Active Substance: METFORMIN HYDROCHLORIDE

REACTIONS (4)
  - Asthenia [None]
  - Dizziness [None]
  - Hypoglycaemia [None]
  - Syncope [None]

NARRATIVE: CASE EVENT DATE: 20150827
